FAERS Safety Report 11550450 (Version 4)
Quarter: 2022Q2

REPORT INFORMATION
  Report Type: Spontaneous
  Country: CA (occurrence: CA)
  Receive Date: 20150924
  Receipt Date: 20220422
  Transmission Date: 20220721
  Serious: Yes (Death)
  Sender: FDA-Public Use
  Company Number: CA-PURDUE PHARMA-CAN-2015-0006108

PATIENT
  Age: 48 Year
  Sex: Male

DRUGS (29)
  1. MORPHINE SULFATE [Interacting]
     Active Substance: MORPHINE SULFATE
     Indication: Product used for unknown indication
     Dosage: UNKNOWN
     Route: 065
  2. CODEINE [Interacting]
     Active Substance: CODEINE
     Indication: Product used for unknown indication
     Dosage: UNK
     Route: 048
  3. CODEINE [Interacting]
     Active Substance: CODEINE
     Indication: Ankle fracture
  4. ACETAMINOPHEN [Interacting]
     Active Substance: ACETAMINOPHEN
     Indication: Product used for unknown indication
     Dosage: UNK
     Route: 048
  5. CAFFEINE [Interacting]
     Active Substance: CAFFEINE
     Indication: Product used for unknown indication
     Dosage: UNK
     Route: 048
  6. CAFFEINE [Interacting]
     Active Substance: CAFFEINE
     Dosage: UNK
     Route: 065
  7. CLONAZEPAM [Interacting]
     Active Substance: CLONAZEPAM
     Indication: Product used for unknown indication
     Dosage: UNK
     Route: 048
  8. LORAZEPAM [Interacting]
     Active Substance: LORAZEPAM
     Indication: Product used for unknown indication
     Dosage: UNK
     Route: 065
  9. LORAZEPAM [Interacting]
     Active Substance: LORAZEPAM
     Dosage: UNK
     Route: 048
  10. SERTRALINE [Interacting]
     Active Substance: SERTRALINE HYDROCHLORIDE
     Indication: Product used for unknown indication
     Dosage: UNK
     Route: 065
  11. SERTRALINE [Interacting]
     Active Substance: SERTRALINE HYDROCHLORIDE
     Dosage: UNK
     Route: 048
  12. ACETAMINOPHEN AND CODEINE [Suspect]
     Active Substance: ACETAMINOPHEN\CODEINE PHOSPHATE
     Indication: Product used for unknown indication
     Dosage: 60 MG, UNK
     Route: 065
  13. ACETAMINOPHEN AND CODEINE [Suspect]
     Active Substance: ACETAMINOPHEN\CODEINE PHOSPHATE
     Dosage: UNK
     Route: 048
  14. ACETAMINOPHEN AND CODEINE [Suspect]
     Active Substance: ACETAMINOPHEN\CODEINE PHOSPHATE
     Dosage: 30 MG, UNK
     Route: 065
  15. ACETAMINOPHEN AND CODEINE [Suspect]
     Active Substance: ACETAMINOPHEN\CODEINE PHOSPHATE
     Dosage: 60 MG, UNK
     Route: 065
  16. ACETAMINOPHEN AND CODEINE [Suspect]
     Active Substance: ACETAMINOPHEN\CODEINE PHOSPHATE
     Dosage: UNK
     Route: 048
  17. ACETAMINOPHEN AND CODEINE [Suspect]
     Active Substance: ACETAMINOPHEN\CODEINE PHOSPHATE
     Dosage: 33 MG, UNK
     Route: 065
  18. ACETAMINOPHEN AND CODEINE [Suspect]
     Active Substance: ACETAMINOPHEN\CODEINE PHOSPHATE
     Dosage: 30 MG, UNK
     Route: 065
  19. AMOBARBITAL [Suspect]
     Active Substance: AMOBARBITAL
     Indication: Product used for unknown indication
     Dosage: UNK
     Route: 065
  20. SERTRALINE HYDROCHLORIDE [Suspect]
     Active Substance: SERTRALINE HYDROCHLORIDE
     Indication: Product used for unknown indication
     Dosage: UNK
     Route: 048
  21. ACETAMINOPHEN\CAFFEINE\CODEINE PHOSPHATE [Suspect]
     Active Substance: ACETAMINOPHEN\CAFFEINE\CODEINE PHOSPHATE
     Indication: Product used for unknown indication
     Dosage: UNK
     Route: 048
  22. ACETAMINOPHEN AND CODEINE [Suspect]
     Active Substance: ACETAMINOPHEN\CODEINE PHOSPHATE
     Indication: Ankle fracture
     Dosage: 60 MG, UNK
     Route: 065
  23. ACETAMINOPHEN AND CODEINE [Suspect]
     Active Substance: ACETAMINOPHEN\CODEINE PHOSPHATE
     Dosage: UNK
     Route: 048
  24. ACETAMINOPHEN AND CODEINE [Suspect]
     Active Substance: ACETAMINOPHEN\CODEINE PHOSPHATE
     Dosage: 33 MG, UNK
     Route: 065
  25. ACETAMINOPHEN AND CODEINE [Suspect]
     Active Substance: ACETAMINOPHEN\CODEINE PHOSPHATE
     Dosage: 30 MG, UNK
     Route: 065
  26. BISACODYL [Concomitant]
     Active Substance: BISACODYL
     Dosage: UNK
     Route: 065
  27. CLONAZEPAM [Concomitant]
     Active Substance: CLONAZEPAM
     Dosage: UNK
     Route: 048
  28. MORPHINE [Concomitant]
     Active Substance: MORPHINE
     Dosage: UNK
     Route: 065
  29. BISACODYL [Suspect]
     Active Substance: BISACODYL
     Indication: Product used for unknown indication

REACTIONS (10)
  - Toxicity to various agents [Fatal]
  - Arteriosclerosis [Fatal]
  - Pneumonia [Fatal]
  - Pulmonary oedema [Fatal]
  - Serotonin syndrome [Fatal]
  - Respiratory depression [Fatal]
  - Drug interaction [Fatal]
  - Accidental overdose [Fatal]
  - Drug level increased [Fatal]
  - Hypoventilation [Fatal]
